FAERS Safety Report 5562406-7 (Version None)
Quarter: 2007Q4

REPORT INFORMATION
  Report Type: 
  Country: None (occurrence: None)
  Receive Date: 20071215
  Receipt Date: 20070403
  Transmission Date: 20080405
  Serious: No
  Sender: FDA-Public Use
  Company Number: US-AMGEN-US208699

PATIENT
  Sex: Female

DRUGS (6)
  1. ENBREL [Suspect]
     Indication: RHEUMATOID ARTHRITIS
     Route: 058
     Dates: start: 20040219
  2. ZITHROMAX [Suspect]
     Route: 065
  3. METHOTREXATE [Concomitant]
     Route: 065
     Dates: start: 20020814
  4. PLAQUENIL [Concomitant]
     Route: 065
     Dates: start: 20020814
  5. ACTONEL [Concomitant]
     Route: 065
     Dates: start: 20020731
  6. TOPROL-XL [Concomitant]
     Route: 065
     Dates: start: 20040302

REACTIONS (3)
  - ABDOMINAL DISTENSION [None]
  - JOINT SWELLING [None]
  - SINUSITIS [None]
